FAERS Safety Report 5252378-7 (Version None)
Quarter: 2007Q1

REPORT INFORMATION
  Report Type: 
  Country: None (occurrence: None)
  Receive Date: 20070301
  Receipt Date: 20060908
  Transmission Date: 20070707
  Serious: Yes (Death, Hospitalization)
  Sender: FDA-Public Use
  Company Number: US-BRISTOL-MYERS SQUIBB COMPANY-13503370

PATIENT
  Age: 57 Year
  Sex: Female
  Weight: 44 kg

DRUGS (2)
  1. PARAPLATIN [Suspect]
     Indication: NON-SMALL CELL LUNG CANCER
     Route: 042
     Dates: start: 20060724
  2. TAXOL [Suspect]

REACTIONS (1)
  - PAIN [None]
